FAERS Safety Report 9833280 (Version 3)
Quarter: 2014Q1

REPORT INFORMATION
  Report Type: Spontaneous
  Country: US (occurrence: US)
  Receive Date: 20140121
  Receipt Date: 20140219
  Transmission Date: 20141002
  Serious: Yes (Other)
  Sender: FDA-Public Use
  Company Number: US-PFIZER INC-2014017061

PATIENT
  Age: 26 Year
  Sex: Male
  Weight: 68.03 kg

DRUGS (7)
  1. EFFEXOR XR [Suspect]
     Indication: DEPRESSION
     Dosage: 150 MG, DAILY
     Route: 048
     Dates: start: 201202
  2. EFFEXOR XR [Suspect]
     Indication: SCHIZOAFFECTIVE DISORDER
     Dosage: 37.5 MG, 1X/DAY
     Route: 048
     Dates: start: 20131216, end: 20140116
  3. EFFEXOR XR [Suspect]
     Dosage: 187.5 MG, DAILY
     Route: 048
     Dates: start: 201401
  4. SEROQUEL XR [Concomitant]
     Indication: SCHIZOAFFECTIVE DISORDER
     Dosage: 300 MG, 1X/DAY AT BEDTIME
     Dates: start: 20130604
  5. KLONOPIN [Concomitant]
     Indication: SCHIZOAFFECTIVE DISORDER
     Dosage: 0.5-1.0 MG TWICE DAILY AS NEEDED
     Dates: start: 20131106
  6. KLONOPIN [Concomitant]
     Indication: ANXIETY
  7. STRATTERA [Concomitant]
     Dosage: 40

REACTIONS (10)
  - Corneal reflex decreased [Recovering/Resolving]
  - Staring [Recovering/Resolving]
  - Abnormal behaviour [Recovering/Resolving]
  - Hypomania [Recovered/Resolved]
  - Mania [Unknown]
  - Dyskinesia [Recovering/Resolving]
  - Anxiety [Recovering/Resolving]
  - Malaise [Recovering/Resolving]
  - Drug ineffective [Unknown]
  - Off label use [Not Recovered/Not Resolved]
